FAERS Safety Report 4377098-2 (Version None)
Quarter: 2004Q2

REPORT INFORMATION
  Report Type: 
  Country: None (occurrence: None)
  Receive Date: 20040615
  Receipt Date: 20040604
  Transmission Date: 20050107
  Serious: Yes (Other)
  Sender: FDA-Public Use
  Company Number: 200412220FR

PATIENT
  Sex: Male

DRUGS (3)
  1. ARAVA [Suspect]
     Indication: RHEUMATOID ARTHRITIS
     Route: 048
     Dates: start: 20040101
  2. HERBAL ONT [Concomitant]
  3. HOMEOPATIC PREPARATION [Concomitant]

REACTIONS (3)
  - FIBRIN D DIMER INCREASED [None]
  - PAIN IN EXTREMITY [None]
  - PHLEBITIS [None]
